FAERS Safety Report 17868198 (Version 1)
Quarter: 2020Q2

REPORT INFORMATION
  Report Type: Spontaneous
  Country: CA (occurrence: CA)
  Receive Date: 20200605
  Receipt Date: 20200605
  Transmission Date: 20200714
  Serious: Yes (Hospitalization)
  Sender: FDA-Public Use
  Company Number: CA-ROCHE-2612427

PATIENT
  Age: 77 Year
  Sex: Male

DRUGS (13)
  1. BEVACIZUMAB. [Suspect]
     Active Substance: BEVACIZUMAB
     Indication: COLORECTAL CANCER METASTATIC
     Dosage: THERAPY DURATION: 176.0 DAYS
     Route: 042
  2. IRINOTECAN HYDROCHLORIDE. [Suspect]
     Active Substance: IRINOTECAN HYDROCHLORIDE
     Indication: COLORECTAL CANCER METASTATIC
     Dosage: THERAPY DURATION: 176.0 DAYS
     Route: 042
  3. PERINDOPRIL [Concomitant]
     Active Substance: PERINDOPRIL
  4. TAMSULOSIN [Concomitant]
     Active Substance: TAMSULOSIN
  5. LEUCOVORIN [FOLINIC ACID] [Suspect]
     Active Substance: LEUCOVORIN
     Indication: COLORECTAL CANCER METASTATIC
     Dosage: THERAPY DURATION: 176.0 DAYS
     Route: 042
  6. ALPRAZOLAM. [Concomitant]
     Active Substance: ALPRAZOLAM
  7. OLANZAPINE. [Concomitant]
     Active Substance: OLANZAPINE
  8. PANTOPRAZOLE [Concomitant]
     Active Substance: PANTOPRAZOLE
  9. INSULIN ASPART [Concomitant]
     Active Substance: INSULIN ASPART
  10. STEMETIL [PROCHLORPERAZINE] [Concomitant]
     Active Substance: PROCHLORPERAZINE
  11. 5-FLUOROURACIL [FLUOROURACIL] [Suspect]
     Active Substance: FLUOROURACIL
     Indication: COLORECTAL CANCER METASTATIC
     Dosage: THERAPY DURATION: 71.0 DAYS
     Route: 040
  12. AMLODIPINE [Concomitant]
     Active Substance: AMLODIPINE BESYLATE
  13. DUTASTERIDE. [Concomitant]
     Active Substance: DUTASTERIDE

REACTIONS (1)
  - Small intestinal obstruction [Recovered/Resolved]
